FAERS Safety Report 7500606-7 (Version None)
Quarter: 2011Q2

REPORT INFORMATION
  Report Type: 
  Country: None (occurrence: None)
  Receive Date: 20110524
  Receipt Date: 20100728
  Transmission Date: 20111010
  Serious: No
  Sender: FDA-Public Use
  Company Number: US-NOVEN-ALL1-2010-03708

PATIENT

DRUGS (7)
  1. ELIDEL [Concomitant]
     Dosage: UNK, 1X/DAY:QD
     Route: 061
     Dates: start: 20030101
  2. DAYTRANA [Suspect]
     Dosage: 20 MG, 1X/DAY:QD
     Route: 062
     Dates: start: 20070101, end: 20070101
  3. SINGULAIR [Concomitant]
     Dosage: 5 MG, 1X/DAY:QD
     Route: 048
     Dates: start: 20050101
  4. FLOVENT [Concomitant]
     Dosage: UNK, 1X/DAY:QD
     Route: 055
     Dates: start: 20040101
  5. ALBUTEROL SULFATE [Concomitant]
     Dosage: UNK, 1X/DAY:QD
     Route: 055
     Dates: start: 20040101
  6. DAYTRANA [Suspect]
     Dosage: 10 MG, 1X/DAY:QD
     Route: 062
     Dates: start: 20070101, end: 20070101
  7. DAYTRANA [Suspect]
     Dosage: 20 MG, 1X/DAY:QD
     Route: 062
     Dates: start: 20100629

REACTIONS (1)
  - APPLICATION SITE PRURITUS [None]
